FAERS Safety Report 7152637-7 (Version None)
Quarter: 2010Q4

REPORT INFORMATION
  Report Type: 
  Country: None (occurrence: None)
  Receive Date: 20101208
  Receipt Date: 20101208
  Transmission Date: 20110411
  Serious: No
  Sender: FDA-Public Use
  Company Number: None

PATIENT
  Age: 4 Month
  Sex: Female
  Weight: 6.804 kg

DRUGS (1)
  1. HYLAND'S TEETHING TABLETS 100% NATURAL HYLAND [Suspect]
     Indication: TEETHING
     Dosage: 2 TO 3 TABLETS 4 TIMES A DAY
     Dates: start: 20100807, end: 20101207

REACTIONS (2)
  - FEELING DRUNK [None]
  - SUDDEN ONSET OF SLEEP [None]
